FAERS Safety Report 16037464 (Version 1)
Quarter: 2019Q1

REPORT INFORMATION
  Report Type: Spontaneous
  Country: DE (occurrence: DE)
  Receive Date: 20190305
  Receipt Date: 20190305
  Transmission Date: 20190418
  Serious: Yes (Death, Congenital Anomaly)
  Sender: FDA-Public Use
  Company Number: DE-MYLANLABS-2019M1018800

PATIENT
  Sex: Male

DRUGS (7)
  1. LEVETIRACETAM. [Suspect]
     Active Substance: LEVETIRACETAM
     Indication: EPILEPSY
     Dosage: 1500 MILLIGRAM, QD (1500 [MG/D ])
     Route: 064
     Dates: start: 20171002, end: 20171223
  2. NEPRESOL                           /00007602/ [Suspect]
     Active Substance: HYDRALAZINE HYDROCHLORIDE
     Indication: HYPERTENSION
     Dosage: 25 MILLIGRAM, QD (25 [MG/D ])
     Route: 064
     Dates: start: 20171103, end: 20171223
  3. ESCITALOPRAM [Suspect]
     Active Substance: ESCITALOPRAM OXALATE
     Indication: DEPRESSION
     Dosage: 220 MILLIGRAM, QD (20 [MG/D ])
     Route: 064
     Dates: start: 20171103, end: 20171223
  4. CANDESARTAN. [Suspect]
     Active Substance: CANDESARTAN
     Indication: HYPERTENSION
     Dosage: 16 MILLIGRAM, QD (16 [MG/D ])
     Route: 064
     Dates: start: 20171002, end: 20171103
  5. L-THYROXIN                         /00068001/ [Concomitant]
     Active Substance: LEVOTHYROXINE
     Indication: AUTOIMMUNE THYROIDITIS
     Dosage: UNK
     Route: 064
     Dates: start: 20171002, end: 20171223
  6. CYTOTEC [Concomitant]
     Active Substance: MISOPROSTOL
     Indication: ABORTION INDUCED
     Dosage: UNK
     Route: 064
     Dates: start: 20171218, end: 20171223
  7. PAROXETINE. [Suspect]
     Active Substance: PAROXETINE
     Indication: DEPRESSION
     Dosage: 30 MILLIGRAM, QD (30 [MG/D ])
     Route: 064
     Dates: start: 20171002, end: 20171103

REACTIONS (2)
  - Anencephaly [Fatal]
  - Foetal exposure during pregnancy [Recovered/Resolved]
